FAERS Safety Report 4835654-9 (Version None)
Quarter: 2005Q4

REPORT INFORMATION
  Report Type: 
  Country: None (occurrence: None)
  Receive Date: 20051123
  Receipt Date: 20051108
  Transmission Date: 20060501
  Serious: Yes (Other)
  Sender: FDA-Public Use
  Company Number: CN-KINGPHARMUSA00001-K200501465

PATIENT
  Age: 31 Year
  Sex: Female

DRUGS (2)
  1. KETALAR [Suspect]
  2. ECSTASY (METHYLENEDIOXYAMPHETAMINE) [Suspect]

REACTIONS (8)
  - DEPRESSION [None]
  - DRUG ABUSER [None]
  - DRUG DEPENDENCE [None]
  - EUPHORIC MOOD [None]
  - FEELING ABNORMAL [None]
  - HALLUCINATION [None]
  - SUICIDE ATTEMPT [None]
  - WEIGHT DECREASED [None]
